FAERS Safety Report 15206042 (Version 2)
Quarter: 2018Q4

REPORT INFORMATION
  Report Type: Spontaneous
  Country: US (occurrence: US)
  Receive Date: 20180727
  Receipt Date: 20181005
  Transmission Date: 20190204
  Serious: Yes (Other)
  Sender: FDA-Public Use
  Company Number: US-BRISTOL-MYERS SQUIBB COMPANY-BMS-2018-067044

PATIENT
  Sex: Female
  Weight: 99.77 kg

DRUGS (2)
  1. ORENCIA [Suspect]
     Active Substance: ABATACEPT
     Indication: RHEUMATOID ARTHRITIS
     Dosage: 125 MG, QWK
     Route: 058
     Dates: start: 201805
  2. ORENCIA [Suspect]
     Active Substance: ABATACEPT
     Indication: ADVERSE EVENT
     Route: 065

REACTIONS (4)
  - Feeling hot [Recovering/Resolving]
  - Panic attack [Recovering/Resolving]
  - Suicidal ideation [Recovering/Resolving]
  - Anxiety disorder [Recovering/Resolving]
